FAERS Safety Report 12481402 (Version 1)
Quarter: 2016Q2

REPORT INFORMATION
  Report Type: Spontaneous
  Country: US (occurrence: US)
  Receive Date: 20160620
  Receipt Date: 20160620
  Transmission Date: 20160815
  Serious: Yes (Other)
  Sender: FDA-Public Use
  Company Number: US-BAUSCH-BL-2015-018611

PATIENT
  Age: 79 Year
  Sex: Male

DRUGS (3)
  1. PROVENGE [Suspect]
     Active Substance: SIPULEUCEL-T
     Indication: PROSTATE CANCER METASTATIC
     Dosage: FIRST DOSE
     Route: 042
  2. PROVENGE [Suspect]
     Active Substance: SIPULEUCEL-T
     Dosage: THIRD DOSE
     Route: 042
     Dates: start: 20150702, end: 20150702
  3. PROVENGE [Suspect]
     Active Substance: SIPULEUCEL-T
     Dosage: SECOND DOSE
     Route: 042

REACTIONS (2)
  - Disease progression [Not Recovered/Not Resolved]
  - Metastases to bone [Not Recovered/Not Resolved]

NARRATIVE: CASE EVENT DATE: 20150727
